FAERS Safety Report 17454136 (Version 1)
Quarter: 2020Q1

REPORT INFORMATION
  Report Type: Spontaneous
  Country: US (occurrence: US)
  Receive Date: 20200224
  Receipt Date: 20200224
  Transmission Date: 20200409
  Serious: No
  Sender: FDA-Public Use
  Company Number: US-CIPLA LTD.-2020US00032

PATIENT

DRUGS (5)
  1. ANORO ELLIPTA [Concomitant]
     Active Substance: UMECLIDINIUM BROMIDE\VILANTEROL TRIFENATATE
     Indication: PRODUCT USED FOR UNKNOWN INDICATION
     Dosage: UNK
     Route: 065
  2. GABAPENTIN. [Suspect]
     Active Substance: GABAPENTIN
     Dosage: 600 MILLIGRAM, DAILY
     Route: 065
     Dates: start: 20191106, end: 201911
  3. GABAPENTIN. [Suspect]
     Active Substance: GABAPENTIN
     Dosage: 900 MILLIGRAM, DAILY
     Route: 065
     Dates: start: 20191113, end: 20191205
  4. TIZANIDINE HCL [Concomitant]
     Active Substance: TIZANIDINE HYDROCHLORIDE
     Indication: BACK PAIN
     Dosage: 2 MILLIGRAM, PRN, 3 TIMES DAILY AS NEEDED
     Route: 065
  5. GABAPENTIN. [Suspect]
     Active Substance: GABAPENTIN
     Indication: PRODUCT USED FOR UNKNOWN INDICATION
     Dosage: 300 MILLIGRAM, QD
     Route: 065
     Dates: start: 20191030, end: 201911

REACTIONS (4)
  - Oropharyngeal pain [Recovered/Resolved]
  - Joint swelling [Recovered/Resolved]
  - Dyspnoea [Recovered/Resolved]
  - Peripheral swelling [Recovered/Resolved]

NARRATIVE: CASE EVENT DATE: 20191030
